FAERS Safety Report 6313890-2 (Version None)
Quarter: 2009Q3

REPORT INFORMATION
  Report Type: 
  Country: None (occurrence: None)
  Receive Date: 20090818
  Receipt Date: 20090807
  Transmission Date: 20100115
  Serious: Yes (Death)
  Sender: FDA-Public Use
  Company Number: JP-ABBOTT-09P-087-0586578-00

PATIENT
  Age: 61 Year
  Sex: Male

DRUGS (4)
  1. LEUPLIN SR FOR INJECTION 11.25 MG [Suspect]
     Indication: PROSTATE CANCER STAGE II
     Route: 058
     Dates: start: 20060925, end: 20061218
  2. CHLORMADINONE ACETATE TAB [Concomitant]
     Indication: PROSTATE CANCER STAGE II
     Dosage: 100MG,1D
     Route: 048
     Dates: end: 20070115
  3. ESTRAMUSTINE PHOSPHATE SODIUM [Concomitant]
     Indication: PROSTATE CANCER STAGE II
     Dosage: 560 MG, 1D
     Route: 048
     Dates: start: 20070116, end: 20070205
  4. HARNAL [Concomitant]
     Indication: BENIGN PROSTATIC HYPERPLASIA
     Dosage: 0.2 MG,1D
     Route: 048

REACTIONS (2)
  - HYPERKALAEMIA [None]
  - INJECTION SITE INDURATION [None]
